FAERS Safety Report 4962603-5 (Version None)
Quarter: 2006Q1

REPORT INFORMATION
  Report Type: 
  Country: None (occurrence: None)
  Receive Date: 20060201
  Receipt Date: 20051026
  Transmission Date: 20060701
  Serious: No
  Sender: FDA-Public Use
  Company Number: 2005PV004137

PATIENT
  Age: 50 Year
  Sex: Male

DRUGS (4)
  1. BYETTA [Suspect]
     Dosage: SC
     Route: 058
     Dates: start: 20050101, end: 20050101
  2. MET [Concomitant]
  3. HUMALOG [Concomitant]
  4. LANTUS [Concomitant]

REACTIONS (2)
  - ABDOMINAL DISCOMFORT [None]
  - WEIGHT DECREASED [None]
